FAERS Safety Report 6313458-8 (Version None)
Quarter: 2009Q3

REPORT INFORMATION
  Report Type: 
  Country: None (occurrence: None)
  Receive Date: 20090818
  Receipt Date: 20090810
  Transmission Date: 20100115
  Serious: Yes (Other)
  Sender: FDA-Public Use
  Company Number: GB-BAXTER-2009BH012605

PATIENT
  Sex: Female

DRUGS (4)
  1. HEPARIN SODIUM 1,000 UNITS AND SODIUM CHLORIDE 0.9% [Suspect]
     Indication: DRUG USE FOR UNKNOWN INDICATION
     Route: 065
  2. PONSTAN [Suspect]
     Indication: DRUG USE FOR UNKNOWN INDICATION
     Route: 065
  3. TRANEXAMIC ACID [Suspect]
     Indication: DRUG USE FOR UNKNOWN INDICATION
     Route: 065
  4. WARFARIN SODIUM [Suspect]
     Indication: DRUG USE FOR UNKNOWN INDICATION
     Route: 065

REACTIONS (3)
  - DRUG INTERACTION [None]
  - HAEMORRHAGIC DIATHESIS [None]
  - INCREASED TENDENCY TO BRUISE [None]
